FAERS Safety Report 9238542 (Version 1)
Quarter: 2013Q2

REPORT INFORMATION
  Report Type: Spontaneous
  Country: US (occurrence: None)
  Receive Date: 20130417
  Receipt Date: 20130417
  Transmission Date: 20140414
  Serious: Yes (Life-Threatening, Hospitalization)
  Sender: FDA-Public Use
  Company Number: None

PATIENT
  Age: 23 Year
  Sex: Male
  Weight: 88.45 kg

DRUGS (1)
  1. NUVIGIL [Suspect]
     Indication: SOMNOLENCE
     Route: 048
     Dates: start: 20130128, end: 20130208

REACTIONS (1)
  - Stevens-Johnson syndrome [None]
